FAERS Safety Report 8571317-4 (Version None)
Quarter: 2012Q3

REPORT INFORMATION
  Report Type: 
  Country: None (occurrence: None)
  Receive Date: 20120806
  Receipt Date: 20120725
  Transmission Date: 20120928
  Serious: Yes (Hospitalization, Other)
  Sender: FDA-Public Use
  Company Number: US-BAYER-201020929NA

PATIENT
  Age: 37 Year
  Sex: Female
  Weight: 99.773 kg

DRUGS (10)
  1. YAZ [Suspect]
  2. IBUPROFEN (ADVIL) [Concomitant]
  3. YASMIN [Suspect]
     Dosage: UNK
     Dates: start: 20070831, end: 20071004
  4. ASCORBIC ACID [Concomitant]
  5. IBUPROFEN [Concomitant]
  6. YAZ [Suspect]
     Indication: PREMENSTRUAL SYNDROME
     Dosage: UNK UNK, QD
     Route: 048
     Dates: start: 20070831, end: 20071004
  7. PHENTERMINE [Concomitant]
     Indication: WEIGHT DECREASED
     Dosage: UNK
     Dates: start: 20070201, end: 20070601
  8. DIETARY SUPPLEMENTS [Concomitant]
     Dosage: UNK
     Dates: start: 20070601, end: 20071001
  9. UNCODEABLE ^UNCLASSIFIABLE^ [Concomitant]
     Indication: DYSPEPSIA
     Dosage: UNK
     Dates: start: 20071001
  10. HERBAL PREPARATION [Concomitant]
     Dosage: UNK
     Dates: start: 20070601, end: 20071001

REACTIONS (7)
  - PULMONARY EMBOLISM [None]
  - PELVIC VENOUS THROMBOSIS [None]
  - PLEURAL EFFUSION [None]
  - NAUSEA [None]
  - CHEST PAIN [None]
  - DYSPNOEA [None]
  - CHEST DISCOMFORT [None]
